FAERS Safety Report 6022012-7 (Version None)
Quarter: 2008Q4

REPORT INFORMATION
  Report Type: 
  Country: None (occurrence: None)
  Receive Date: 20081223
  Receipt Date: 20081208
  Transmission Date: 20090506
  Serious: Yes (Hospitalization)
  Sender: FDA-Public Use
  Company Number: 2008S1021742

PATIENT
  Age: 71 Year
  Sex: Female

DRUGS (12)
  1. AMIODARONE HYDROCHLORIDE [Suspect]
     Indication: ARRHYTHMIA
     Dosage: 200 MG; 3 TIMES A DAY;
  2. CALCIUM ACETATE [Concomitant]
  3. IRON [Concomitant]
  4. FUROSEMIDE [Concomitant]
  5. POTASSIUM CHLORIDE [Concomitant]
  6. HYDRALAZINE HCL [Concomitant]
  7. PREDNISONE [Concomitant]
  8. PANTOPRAZOLE [Concomitant]
  9. SODIUM BICARBONATE [Concomitant]
  10. CLONIDINE [Concomitant]
  11. INSULIN GLARGINE [Concomitant]
  12. NIPEDIPINE [Concomitant]

REACTIONS (8)
  - ALANINE AMINOTRANSFERASE INCREASED [None]
  - ARTERIOSCLEROSIS [None]
  - ASPARTATE AMINOTRANSFERASE INCREASED [None]
  - BLOOD PRESSURE INCREASED [None]
  - INCORRECT DOSE ADMINISTERED [None]
  - KIDNEY FIBROSIS [None]
  - LIPIDOSIS [None]
  - RENAL IMPAIRMENT [None]
